FAERS Safety Report 8539559 (Version 3)
Quarter: 2012Q4

REPORT INFORMATION
  Report Type: 
  Country: SE (occurrence: SE)
  Receive Date: 20120502
  Receipt Date: 20121120
  Transmission Date: 20130627
  Serious: Yes (Hospitalization, Other)
  Sender: FDA-Public Use
  Company Number: SE-AMGEN-SWESP2011044847

PATIENT
  Age: 53 Year
  Sex: Female
  Weight: 55 kg

DRUGS (7)
  1. ENBREL [Suspect]
     Indication: RHEUMATOID ARTHRITIS
     Dosage: 50 mg, weekly
     Route: 058
     Dates: start: 19990927, end: 200601
  2. CALCICHEW-D3 [Concomitant]
     Dosage: two tablets, evening
     Dates: start: 20001128
  3. KESTINE [Concomitant]
     Dosage: 10 mg, 1x/day
     Dates: start: 20040621
  4. STILNOCT [Concomitant]
     Dosage: 10 mg, 1x/day
     Dates: start: 20010522
  5. NOBLIGAN [Concomitant]
     Dosage: 100 mg, 1x/day
     Dates: start: 19980715
  6. ALVEDON [Concomitant]
     Dosage: 1000 mg, as needed
     Dates: start: 19970203
  7. PREDNISOLON                        /00016201/ [Concomitant]
     Dosage: UNK

REACTIONS (2)
  - Proctitis ulcerative [Recovering/Resolving]
  - Crohn^s disease [Not Recovered/Not Resolved]
